FAERS Safety Report 17189414 (Version 2)
Quarter: 2020Q1

REPORT INFORMATION
  Report Type: Report from Study
  Country: US (occurrence: US)
  Receive Date: 20191223
  Receipt Date: 20200209
  Transmission Date: 20200409
  Serious: Yes (Other)
  Sender: FDA-Public Use
  Company Number: US-BEH-2019110800

PATIENT
  Age: 24 Year
  Sex: Female
  Weight: 104.31 kg

DRUGS (1)
  1. HAEGARDA [Suspect]
     Active Substance: HUMAN C1-ESTERASE INHIBITOR
     Indication: HEREDITARY ANGIOEDEMA
     Dosage: 6000 (UNIT NOT REPORTED, 3-4 TIMES
     Route: 058
     Dates: start: 20170821

REACTIONS (6)
  - Hereditary angioedema [Unknown]
  - Needle issue [Unknown]
  - Product dose omission [Unknown]
  - Inflammation [Unknown]
  - Fatigue [Unknown]
  - Device issue [Unknown]

NARRATIVE: CASE EVENT DATE: 20191212
